FAERS Safety Report 8844488 (Version 3)
Quarter: 2013Q1

REPORT INFORMATION
  Report Type: Spontaneous
  Country: JP (occurrence: None)
  Receive Date: 20121012
  Receipt Date: 20121109
  Transmission Date: 20140127
  Serious: Yes (Hospitalization)
  Sender: FDA-Public Use
  Company Number: JP-2012-16501

PATIENT
  Age: 41 Year
  Sex: Female
  Weight: 45 kg

DRUGS (2)
  1. TOLVAPTAN [Suspect]
     Indication: CONGENITAL CYSTIC KIDNEY DISEASE
     Dosage: 120 MG MILLIGRAM(S), DAILY DOSE, ORAL
     Route: 048
     Dates: start: 20110614, end: 20121001
  2. MEIACT (CEFDITOREN PIVOXIL) [Concomitant]
     Indication: CONGENITAL CYSTIC KIDNEY DISEASE
     Dosage: 300 MG MILLIGRAM(S), DAILY DOSE, ORAL

REACTIONS (8)
  - Renal cyst infection [None]
  - Weight decreased [None]
  - Intracranial aneurysm [None]
  - Gingivitis [None]
  - Back pain [None]
  - Back pain [None]
  - Flank pain [None]
  - Pyrexia [None]
